FAERS Safety Report 20742040 (Version 1)
Quarter: 2022Q2

REPORT INFORMATION
  Report Type: Spontaneous
  Country: ES (occurrence: ES)
  Receive Date: 20220423
  Receipt Date: 20220423
  Transmission Date: 20220721
  Serious: Yes (Hospitalization)
  Sender: FDA-Public Use
  Company Number: None

PATIENT
  Age: 81 Year
  Sex: Female

DRUGS (2)
  1. LOSARTAN [Interacting]
     Active Substance: LOSARTAN
     Indication: Hypertension
     Dosage: FORM STRENGTH: 50 MG, UNIT DOSE: 50 MG, 28 TABLETS, FREQUENCY TIME- 1 DAY, DURATION-3544 DAYS
     Route: 048
     Dates: start: 20120215, end: 20211029
  2. FUROSEMIDE [Interacting]
     Active Substance: FUROSEMIDE
     Indication: Hypertension
     Dosage: 30 TABLETS, FORM STRENGTH: 40 MG, UNIT DOSE: 40 MG, FREQUENCY TIME- 1 DAY
     Route: 048
     Dates: start: 20051122

REACTIONS (2)
  - Acute kidney injury [Recovered/Resolved]
  - Drug interaction [Unknown]

NARRATIVE: CASE EVENT DATE: 20211027
